FAERS Safety Report 5256728-7 (Version None)
Quarter: 2007Q1

REPORT INFORMATION
  Report Type: 
  Country: None (occurrence: None)
  Receive Date: 20070306
  Receipt Date: 20070222
  Transmission Date: 20070707
  Serious: Yes (Other)
  Sender: FDA-Public Use
  Company Number: US-PFIZER INC-2007014644

PATIENT
  Sex: Female
  Weight: 83.9 kg

DRUGS (4)
  1. LYRICA [Suspect]
     Indication: CONVULSION
  2. RELPAX [Suspect]
     Indication: MIGRAINE
  3. TOPAMAX [Concomitant]
     Dosage: DAILY DOSE:500MG
  4. ALL OTHER THERAPEUTIC PRODUCTS [Concomitant]

REACTIONS (5)
  - ABASIA [None]
  - MUSCLE TWITCHING [None]
  - PARAESTHESIA [None]
  - PARALYSIS [None]
  - SPEECH DISORDER [None]
